FAERS Safety Report 9192820 (Version 1)
Quarter: 2013Q1

REPORT INFORMATION
  Report Type: Spontaneous
  Country: US (occurrence: None)
  Receive Date: 20130325
  Receipt Date: 20130325
  Transmission Date: 20140127
  Serious: Yes (Hospitalization)
  Sender: FDA-Public Use
  Company Number: None

PATIENT
  Age: 77 Year
  Sex: Male
  Weight: 72.9 kg

DRUGS (2)
  1. ENOXAPARIN [Suspect]
     Indication: ATRIAL FIBRILLATION
     Route: 058
     Dates: start: 20130113, end: 20130125
  2. WARFARIN [Suspect]
     Dosage: 1 TAB EVERYDAY PO
     Dates: start: 20130114, end: 20130125

REACTIONS (2)
  - Muscle haemorrhage [None]
  - International normalised ratio decreased [None]
